FAERS Safety Report 24357302 (Version 1)
Quarter: 2024Q3

REPORT INFORMATION
  Report Type: Spontaneous
  Country: FR (occurrence: FR)
  Receive Date: 20240924
  Receipt Date: 20240924
  Transmission Date: 20241017
  Serious: Yes (Hospitalization)
  Sender: ABBVIE
  Company Number: None

PATIENT
  Age: 59 Year
  Sex: Female

DRUGS (2)
  1. CITALOPRAM [Suspect]
     Active Substance: CITALOPRAM\CITALOPRAM HYDROBROMIDE
     Indication: Bipolar disorder
     Dosage: DAILY DOSE: 10.0 MG, TOTAL: 350.0 MG, FORM: UNKNOWN
     Route: 048
     Dates: start: 20221205, end: 20230109
  2. LAMOTRIGINE [Suspect]
     Active Substance: LAMOTRIGINE
     Indication: Bipolar disorder
     Dosage: DAILY DOSE: 100.0 MG, TOTAL: 3100.0 MG
     Route: 048
     Dates: start: 20221205, end: 20230105

REACTIONS (2)
  - Toxic epidermal necrolysis [Recovering/Resolving]
  - Product use in unapproved indication [Unknown]

NARRATIVE: CASE EVENT DATE: 20230105
